FAERS Safety Report 5853823-6 (Version None)
Quarter: 2008Q3

REPORT INFORMATION
  Report Type: 
  Country: None (occurrence: None)
  Receive Date: 20080822
  Receipt Date: 20080820
  Transmission Date: 20090109
  Serious: Yes (Hospitalization, Disabling)
  Sender: FDA-Public Use
  Company Number: JP-ASTRAZENECA-2008AP05887

PATIENT
  Age: 52 Year
  Sex: Female
  Weight: 48 kg

DRUGS (5)
  1. IRESSA [Suspect]
     Indication: LUNG NEOPLASM MALIGNANT
     Route: 048
     Dates: start: 20080710, end: 20080725
  2. CYANOCOBALAMIN [Concomitant]
     Route: 048
     Dates: start: 20080711, end: 20080725
  3. FLAVITAN [Concomitant]
     Route: 048
     Dates: start: 20080724, end: 20080724
  4. LOXONIN [Concomitant]
     Route: 048
  5. MUCOSTA [Concomitant]
     Route: 048

REACTIONS (1)
  - CEREBRAL INFARCTION [None]
